FAERS Safety Report 19847536 (Version 1)
Quarter: 2021Q3

REPORT INFORMATION
  Report Type: Spontaneous
  Country: US (occurrence: US)
  Receive Date: 20210917
  Receipt Date: 20210917
  Transmission Date: 20211014
  Serious: Yes (Other)
  Sender: FDA-Public Use
  Company Number: US-PFIZER INC-202101190391

PATIENT
  Age: 73 Year
  Sex: Male
  Weight: 48.08 kg

DRUGS (1)
  1. CHANTIX [Suspect]
     Active Substance: VARENICLINE TARTRATE
     Indication: SMOKING CESSATION THERAPY
     Dosage: 0.5/1MG
     Dates: start: 2021, end: 202108

REACTIONS (7)
  - Malaise [Unknown]
  - Nausea [Recovering/Resolving]
  - Illness [Unknown]
  - Chest pain [Unknown]
  - Lung neoplasm malignant [Unknown]
  - Recalled product administered [Unknown]
  - Vomiting [Unknown]
